FAERS Safety Report 7033401-6 (Version None)
Quarter: 2010Q4

REPORT INFORMATION
  Report Type: 
  Country: None (occurrence: None)
  Receive Date: 20101007
  Receipt Date: 20101001
  Transmission Date: 20110411
  Serious: No
  Sender: FDA-Public Use
  Company Number: US-B.I. PHARMACEUTICALS,INC./RIDGEFIELD-2009-BP-13815BP

PATIENT
  Sex: Male

DRUGS (7)
  1. ZANTAC 150 [Suspect]
     Indication: DYSPEPSIA
     Route: 048
     Dates: start: 20091001
  2. PLAVIX [Concomitant]
  3. ZOCOR [Concomitant]
  4. NORVASC [Concomitant]
  5. EYE VITAMIN [Concomitant]
  6. AREDS [Concomitant]
  7. QVAR 40 [Concomitant]
     Indication: PROPHYLAXIS

REACTIONS (2)
  - DEPRESSION [None]
  - FLATULENCE [None]
